FAERS Safety Report 12263587 (Version 1)
Quarter: 2016Q2

REPORT INFORMATION
  Report Type: Spontaneous
  Country: US (occurrence: US)
  Receive Date: 20160413
  Receipt Date: 20160413
  Transmission Date: 20160815
  Serious: Yes (Other)
  Sender: FDA-Public Use
  Company Number: US-PFIZER INC-2016203329

PATIENT
  Age: 84 Year
  Sex: Female
  Weight: 118 kg

DRUGS (7)
  1. LYRICA [Suspect]
     Active Substance: PREGABALIN
     Dosage: 50MG, CAPSULES, ONE A DAY
     Route: 048
     Dates: start: 2015
  2. BABY ASPIRIN [Concomitant]
     Active Substance: ASPIRIN
     Indication: HYPERTENSION
     Dosage: 80 MG, UNK
  3. LYRICA [Suspect]
     Active Substance: PREGABALIN
     Indication: NEURALGIA
     Dosage: TWO A DAY
  4. METFORMIN [Concomitant]
     Active Substance: METFORMIN HYDROCHLORIDE
     Indication: DIABETES MELLITUS
     Dosage: 500 MG, 3X/DAY
  5. ATENOLOL. [Concomitant]
     Active Substance: ATENOLOL
     Indication: HYPERTENSION
     Dosage: 50 MG, UNK
  6. ATENOLOL. [Concomitant]
     Active Substance: ATENOLOL
     Dosage: ONE AND A HALF
  7. LOSARTAN POTASSIUM. [Concomitant]
     Active Substance: LOSARTAN POTASSIUM
     Indication: FLUID RETENTION
     Dosage: 100 MG, UNK
     Dates: start: 2015

REACTIONS (3)
  - Pain [Recovering/Resolving]
  - Intentional product use issue [Unknown]
  - Kidney infection [Recovering/Resolving]

NARRATIVE: CASE EVENT DATE: 201603
